FAERS Safety Report 10032581 (Version 2)
Quarter: 2014Q1

REPORT INFORMATION
  Report Type: Spontaneous
  Country: US (occurrence: US)
  Receive Date: 20140324
  Receipt Date: 20140324
  Transmission Date: 20141002
  Serious: Yes (Death, Hospitalization)
  Sender: FDA-Public Use
  Company Number: US-GLAXOSMITHKLINE-A0813015A

PATIENT
  Age: 78 Year
  Sex: Female
  Weight: 57.7 kg

DRUGS (17)
  1. AVANDIA [Suspect]
     Indication: TYPE 2 DIABETES MELLITUS
     Route: 048
     Dates: start: 200010
  2. NAPROXEN [Concomitant]
  3. LOVENOX [Concomitant]
  4. DURAGESIC [Concomitant]
  5. FAMOTIDINE [Concomitant]
  6. ARICEPT [Concomitant]
  7. ZOCOR [Concomitant]
  8. FLUOXETINE [Concomitant]
  9. SENNA [Concomitant]
  10. TIMOLOL [Concomitant]
  11. XALATAN [Concomitant]
  12. DARVOCET [Concomitant]
  13. MORPHINE [Concomitant]
  14. MILK OF MAGNESIA [Concomitant]
  15. PROPOXYPHENE NAPSYLATE [Concomitant]
  16. NAMENDA [Concomitant]
  17. FOSAMAX [Concomitant]

REACTIONS (12)
  - Bronchopneumonia [Fatal]
  - Respiratory failure [Unknown]
  - Hip fracture [Unknown]
  - Angina pectoris [Unknown]
  - Dementia [Unknown]
  - Cardiac failure congestive [Unknown]
  - Emotional disorder [Unknown]
  - Chest pain [Unknown]
  - Oedema [Unknown]
  - Cardiovascular disorder [Unknown]
  - Weight increased [Unknown]
  - Brain hypoxia [Unknown]
